FAERS Safety Report 9925980 (Version 9)
Quarter: 2014Q3

REPORT INFORMATION
  Report Type: Spontaneous
  Country: BE (occurrence: BE)
  Receive Date: 20140226
  Receipt Date: 20140904
  Transmission Date: 20150326
  Serious: Yes (Hospitalization, Other)
  Sender: FDA-Public Use
  Company Number: BE-MERCK-1401BEL013436

PATIENT
  Age: 41 Year
  Sex: Female

DRUGS (7)
  1. PEGINTRON [Suspect]
     Active Substance: PEGINTERFERON ALFA-2B
     Indication: HEPATITIS C
     Dosage: 150 UG WEEKLY
     Dates: start: 20140108, end: 20140716
  2. VICTRELIS [Suspect]
     Active Substance: BOCEPREVIR
     Indication: HEPATITIS C
     Dosage: UNK, TID
     Route: 048
     Dates: start: 20140213, end: 20140722
  3. DAFALGAN [Concomitant]
     Active Substance: ACETAMINOPHEN
     Dosage: UNK
     Dates: start: 2014
  4. VITAMINS (UNSPECIFIED) [Concomitant]
     Active Substance: VITAMINS
     Indication: ALOPECIA
     Dosage: UNK
  5. REBETOL [Suspect]
     Active Substance: RIBAVIRIN
     Indication: HEPATITIS C
     Dosage: UNK, BID
     Route: 048
     Dates: start: 20140108, end: 20140406
  6. REBETOL [Suspect]
     Active Substance: RIBAVIRIN
     Dosage: UNK, BID
     Route: 048
     Dates: start: 20140407, end: 20140722
  7. NUVARING [Concomitant]
     Active Substance: ETHINYL ESTRADIOL\ETONOGESTREL
     Dosage: UNK
     Dates: start: 2014

REACTIONS (18)
  - Muscle spasms [Recovering/Resolving]
  - Abdominal discomfort [Recovering/Resolving]
  - Anaemia [Unknown]
  - Fatigue [Unknown]
  - Alopecia [Recovering/Resolving]
  - Product quality issue [Unknown]
  - Thrombocytopenia [Recovering/Resolving]
  - Neutropenia [Recovering/Resolving]
  - Headache [Recovering/Resolving]
  - Drug dose omission [Unknown]
  - Gingival bleeding [Recovering/Resolving]
  - Menstrual disorder [Recovering/Resolving]
  - Dyspnoea [Recovering/Resolving]
  - Aphthous stomatitis [Recovering/Resolving]
  - Menorrhagia [Recovering/Resolving]
  - Underdose [Unknown]
  - Sterilisation [Unknown]
  - Influenza like illness [Recovering/Resolving]

NARRATIVE: CASE EVENT DATE: 2014
